FAERS Safety Report 11257696 (Version 1)
Quarter: 2015Q3

REPORT INFORMATION
  Report Type: Spontaneous
  Country: US (occurrence: US)
  Receive Date: 20150710
  Receipt Date: 20150710
  Transmission Date: 20151125
  Serious: No
  Sender: FDA-Public Use
  Company Number: US-009507513-1507USA001237

PATIENT
  Sex: Female

DRUGS (1)
  1. FOLLISTIM [Suspect]
     Active Substance: FOLLITROPIN
     Indication: PREGNANCY
     Dosage: 225 IU EVERY DAY FOR TEN DAYS
     Dates: start: 201506

REACTIONS (3)
  - Underdose [Unknown]
  - Product quality issue [Unknown]
  - No therapeutic response [Unknown]

NARRATIVE: CASE EVENT DATE: 201506
